FAERS Safety Report 16053403 (Version 1)
Quarter: 2019Q1

REPORT INFORMATION
  Report Type: Spontaneous
  Country: DE (occurrence: DE)
  Receive Date: 20190308
  Receipt Date: 20190308
  Transmission Date: 20190418
  Serious: Yes (Other)
  Sender: FDA-Public Use
  Company Number: DE-ALLERGAN-1909173US

PATIENT

DRUGS (2)
  1. MONODEX [Suspect]
     Active Substance: DEXAMETHASONE
     Indication: EYE INJURY
     Dosage: UNK
     Route: 047
  2. ATROPINE UNK [Suspect]
     Active Substance: ATROPINE SULFATE
     Indication: EYE INJURY
     Dosage: UNK
     Route: 065

REACTIONS (1)
  - Intraocular pressure increased [Unknown]
